FAERS Safety Report 8585545-5 (Version None)
Quarter: 2012Q3

REPORT INFORMATION
  Report Type: 
  Country: None (occurrence: None)
  Receive Date: 20120810
  Receipt Date: 20120801
  Transmission Date: 20120928
  Serious: Yes (Hospitalization)
  Sender: FDA-Public Use
  Company Number: NL-ELI_LILLY_AND_COMPANY-NL201208000203

PATIENT
  Sex: Male

DRUGS (5)
  1. FOLIC ACID [Concomitant]
     Dosage: 0.5 MG, QD
     Route: 065
     Dates: start: 20120611
  2. CISPLATIN [Concomitant]
     Indication: MESOTHELIOMA MALIGNANT
     Dosage: UNK UNK, UNKNOWN
     Route: 065
     Dates: start: 20120625
  3. HYDROXOCOBALAMINE [Concomitant]
     Dosage: 2 ML, UNKNOWN
     Route: 065
     Dates: start: 20120611
  4. ALIMTA [Suspect]
     Indication: MESOTHELIOMA MALIGNANT
     Dosage: UNK, UNKNOWN
     Route: 065
     Dates: start: 20120625
  5. OMEPRAZOLE [Concomitant]
     Dosage: 40 MG, UNK
     Route: 065

REACTIONS (1)
  - PULMONARY TOXICITY [None]
